FAERS Safety Report 8110008-0 (Version None)
Quarter: 2012Q1

REPORT INFORMATION
  Report Type: 
  Country: None (occurrence: None)
  Receive Date: 20120202
  Receipt Date: 20120104
  Transmission Date: 20120608
  Serious: Yes (Death)
  Sender: FDA-Public Use
  Company Number: US-COVIDIEN/TYCO HEALTHCARE/MALLINCKRODT-T201200064

PATIENT
  Age: 62 Year
  Sex: Female

DRUGS (6)
  1. TRAZODONE HCL [Suspect]
     Route: 048
  2. LAXATIVES [Suspect]
  3. BUPROPION HCL [Suspect]
     Route: 048
  4. IMIPRAMINE PAMOATE [Suspect]
     Route: 048
  5. SKELETAL MUSCLE RELAXANT [Suspect]
     Route: 048
  6. DIPHENHYDRAMINE HCL [Suspect]

REACTIONS (1)
  - CARDIO-RESPIRATORY ARREST [None]
